FAERS Safety Report 4381168-2 (Version None)
Quarter: 2004Q2

REPORT INFORMATION
  Report Type: 
  Country: None (occurrence: None)
  Receive Date: 20040621
  Receipt Date: 20040608
  Transmission Date: 20050107
  Serious: Yes (Disabling, Other)
  Sender: FDA-Public Use
  Company Number: PHBS2004JP07534

PATIENT
  Age: 81 Year
  Sex: Male

DRUGS (5)
  1. TEGRETOL [Suspect]
     Indication: TRIGEMINAL NEURALGIA
     Dosage: 200 MG, BID
     Route: 048
     Dates: start: 20020101
  2. TEGRETOL [Suspect]
     Route: 048
     Dates: start: 20030506, end: 20030610
  3. TEGRETOL [Suspect]
     Dosage: 300 MG/DAY
     Route: 048
     Dates: start: 20040419, end: 20040425
  4. TEGRETOL [Suspect]
     Dosage: 150 MG/DAY
     Route: 048
     Dates: start: 20040426, end: 20040509
  5. TEGRETOL [Suspect]
     Dosage: 300 MG/DAY
     Route: 048
     Dates: start: 20040510, end: 20040516

REACTIONS (3)
  - ATRIOVENTRICULAR BLOCK COMPLETE [None]
  - BUNDLE BRANCH BLOCK RIGHT [None]
  - CARDIAC PACEMAKER INSERTION [None]
